FAERS Safety Report 23908208 (Version 1)
Quarter: 2024Q2

REPORT INFORMATION
  Report Type: Spontaneous
  Country: US (occurrence: None)
  Receive Date: 20240524
  Receipt Date: 20240524
  Transmission Date: 20240716
  Serious: No
  Sender: FDA-Public Use
  Company Number: None

PATIENT
  Age: 80 Year
  Sex: Male

DRUGS (1)
  1. PIRFENIDONE [Suspect]
     Active Substance: PIRFENIDONE
     Indication: Idiopathic pulmonary fibrosis
     Dosage: 267MG TID ORAL?
     Route: 048
     Dates: start: 20240126, end: 20240512

REACTIONS (5)
  - Decreased appetite [None]
  - Anosmia [None]
  - Ageusia [None]
  - Asthenia [None]
  - Weight decreased [None]

NARRATIVE: CASE EVENT DATE: 20240512
